FAERS Safety Report 13206655 (Version 1)
Quarter: 2017Q1

REPORT INFORMATION
  Report Type: Spontaneous
  Country: US (occurrence: US)
  Receive Date: 20170209
  Receipt Date: 20170209
  Transmission Date: 20170428
  Serious: No
  Sender: FDA-Public Use
  Company Number: US-SA-2016SA218795

PATIENT
  Age: 83 Year
  Sex: Female

DRUGS (10)
  1. VITAMINS [Concomitant]
     Active Substance: VITAMINS
     Route: 065
  2. HYOSCYAMINE. [Concomitant]
     Active Substance: HYOSCYAMINE
     Route: 065
  3. ALIROCUMAB PREFILLED PEN [Concomitant]
     Active Substance: ALIROCUMAB
     Indication: BLOOD CHOLESTEROL INCREASED
     Route: 065
     Dates: start: 2016, end: 20161124
  4. PREDNISONE. [Concomitant]
     Active Substance: PREDNISONE
     Route: 065
  5. SERTRALINE [Concomitant]
     Active Substance: SERTRALINE HYDROCHLORIDE
     Route: 065
  6. SINGULAIR [Concomitant]
     Active Substance: MONTELUKAST SODIUM
     Route: 065
  7. NORVASC [Concomitant]
     Active Substance: AMLODIPINE BESYLATE
     Route: 065
  8. PRALUENT [Suspect]
     Active Substance: ALIROCUMAB
     Indication: BLOOD CHOLESTEROL INCREASED
     Route: 065
     Dates: start: 2016, end: 20161124
  9. PLAVIX [Concomitant]
     Active Substance: CLOPIDOGREL BISULFATE
     Route: 065
  10. PANTOPRAZOLE [Concomitant]
     Active Substance: PANTOPRAZOLE SODIUM
     Route: 065

REACTIONS (5)
  - Stress [Not Recovered/Not Resolved]
  - Drug dose omission [Unknown]
  - Somnolence [Not Recovered/Not Resolved]
  - Urinary incontinence [Not Recovered/Not Resolved]
  - Pain [Not Recovered/Not Resolved]

NARRATIVE: CASE EVENT DATE: 201611
